FAERS Safety Report 10184983 (Version 1)
Quarter: 2014Q2

REPORT INFORMATION
  Report Type: Spontaneous
  Country: US (occurrence: None)
  Receive Date: 20140520
  Receipt Date: 20140520
  Transmission Date: 20141212
  Serious: Yes (Life-Threatening, Other)
  Sender: FDA-Public Use
  Company Number: None

PATIENT
  Age: 30 Year
  Sex: Male
  Weight: 122.47 kg

DRUGS (1)
  1. NORTRIPTYLINE [Suspect]
     Indication: FIBROMYALGIA
     Dosage: 2 PILLS AT BEDTIME TAKEN BY MOUTH
     Route: 048
     Dates: start: 20140121, end: 20140123

REACTIONS (12)
  - Sleep terror [None]
  - Parasomnia [None]
  - Irritability [None]
  - Paranoia [None]
  - Somnambulism [None]
  - Aggression [None]
  - Sleep sex [None]
  - Sleep talking [None]
  - Sleep-related eating disorder [None]
  - Amnesia [None]
  - Physical abuse [None]
  - Abnormal behaviour [None]
